FAERS Safety Report 8399592-X (Version None)
Quarter: 2012Q2

REPORT INFORMATION
  Report Type: 
  Country: None (occurrence: None)
  Receive Date: 20120531
  Receipt Date: 20120516
  Transmission Date: 20120825
  Serious: Yes (Other)
  Sender: FDA-Public Use
  Company Number: DE-JUTA GMBH-2012-08562

PATIENT
  Age: 27 Year
  Sex: Male

DRUGS (1)
  1. ZOLPIDEM TARTRATE [Suspect]
     Indication: INSOMNIA
     Dosage: 800 MG, DAILY
     Route: 065

REACTIONS (6)
  - DRUG WITHDRAWAL SYNDROME [None]
  - PARAPLEGIA [None]
  - DRUG DEPENDENCE [None]
  - SPINAL FRACTURE [None]
  - FALL [None]
  - DRUG ABUSE [None]
